FAERS Safety Report 10269307 (Version 4)
Quarter: 2014Q3

REPORT INFORMATION
  Report Type: Spontaneous
  Country: US (occurrence: US)
  Receive Date: 20140701
  Receipt Date: 20140925
  Transmission Date: 20150326
  Serious: Yes (Other)
  Sender: FDA-Public Use
  Company Number: US-AMGEN INC.-USASP2014048226

PATIENT
  Age: 61 Year
  Sex: Male
  Weight: 73.02 kg

DRUGS (7)
  1. ENBREL [Suspect]
     Active Substance: ETANERCEPT
     Indication: PSORIASIS
  2. NOVOLOG [Concomitant]
     Active Substance: INSULIN ASPART
     Dosage: 40 UNIT, AS NECESSARY
  3. ALEVE [Concomitant]
     Active Substance: NAPROXEN SODIUM
     Dosage: 220 MG, EVERY 8 HOURS AS NEEDED
  4. LISINOPRIL. [Concomitant]
     Active Substance: LISINOPRIL
     Dosage: 10 MG, QD
  5. ENBREL [Suspect]
     Active Substance: ETANERCEPT
     Indication: PSORIATIC ARTHROPATHY
     Dosage: 50 MG, QWK
     Route: 065
     Dates: start: 201403, end: 20140624
  6. LIPITOR [Concomitant]
     Active Substance: ATORVASTATIN CALCIUM
     Dosage: 0.5 DF, EVERY OTHER DAY
  7. MYCOLOG-II [Concomitant]
     Active Substance: NYSTATIN\TRIAMCINOLONE ACETONIDE
     Dosage: SMALL AMOUNT 3 TIMES A DAY

REACTIONS (17)
  - Tendonitis [Recovered/Resolved]
  - Synovial cyst [Unknown]
  - Dupuytren^s contracture [Unknown]
  - Pain in extremity [Unknown]
  - Malignant melanoma [Recovered/Resolved]
  - Drug effect incomplete [Not Recovered/Not Resolved]
  - Tenosynovitis [Recovered/Resolved]
  - Lyme disease [Unknown]
  - Hepatitis C [Unknown]
  - Onychomycosis [Unknown]
  - Psoriasis [Unknown]
  - Type 1 diabetes mellitus [Unknown]
  - Hepatic cirrhosis [Unknown]
  - Osteoarthritis [Unknown]
  - Body tinea [Unknown]
  - Joint stiffness [Unknown]
  - Temporomandibular joint syndrome [Recovered/Resolved]

NARRATIVE: CASE EVENT DATE: 20140331
